FAERS Safety Report 9299412 (Version 1)
Quarter: 2013Q2

REPORT INFORMATION
  Report Type: Spontaneous
  Country: CA (occurrence: CA)
  Receive Date: 20130520
  Receipt Date: 20130520
  Transmission Date: 20140414
  Serious: Yes (Other)
  Sender: FDA-Public Use
  Company Number: CA-B.I. PHARMACEUTICALS,INC./RIDGEFIELD-2013-CN-00859CN

PATIENT
  Age: 73 Year
  Sex: Female

DRUGS (7)
  1. PRADAX [Suspect]
     Dosage: 300 MG
     Route: 048
  2. ATROVENT [Concomitant]
  3. CARBOCAL D [Concomitant]
  4. FLOVENT [Concomitant]
  5. NOVO-RISEDRONATE [Concomitant]
  6. PANTOPRAZOLE [Concomitant]
  7. TAMBOCOR [Concomitant]

REACTIONS (6)
  - Asthenopia [Not Recovered/Not Resolved]
  - Decubitus ulcer [Not Recovered/Not Resolved]
  - Foreign body sensation in eyes [Not Recovered/Not Resolved]
  - Paraesthesia [Not Recovered/Not Resolved]
  - Skin disorder [Not Recovered/Not Resolved]
  - Pruritus [Not Recovered/Not Resolved]
